FAERS Safety Report 5086608-1 (Version None)
Quarter: 2006Q3

REPORT INFORMATION
  Report Type: 
  Country: None (occurrence: None)
  Receive Date: 20060823
  Receipt Date: 20060725
  Transmission Date: 20061208
  Serious: Yes (Life-Threatening, Hospitalization)
  Sender: FDA-Public Use
  Company Number: JP-MERCK-0607USA05558

PATIENT
  Age: 13 Year
  Sex: Male
  Weight: 60 kg

DRUGS (4)
  1. COZAAR [Suspect]
     Route: 048
     Dates: start: 20060724, end: 20060724
  2. UNIPHYL [Suspect]
     Route: 065
     Dates: start: 20060724, end: 20060724
  3. HALCION [Suspect]
     Route: 048
     Dates: start: 20060724, end: 20060724
  4. SPELEAR [Suspect]
     Route: 065
     Dates: start: 20060724, end: 20060724

REACTIONS (5)
  - HYPERURICAEMIA [None]
  - HYPOKALAEMIA [None]
  - INFLAMMATION [None]
  - OVERDOSE [None]
  - RENAL FAILURE ACUTE [None]
